FAERS Safety Report 21275168 (Version 2)
Quarter: 2023Q1

REPORT INFORMATION
  Report Type: Spontaneous
  Country: US (occurrence: US)
  Receive Date: 20220831
  Receipt Date: 20230209
  Transmission Date: 20230417
  Serious: Yes (Life-Threatening, Other)
  Sender: FDA-Public Use
  Company Number: US-PFIZER INC-PV202200048133

PATIENT
  Age: 30 Year
  Sex: Male

DRUGS (5)
  1. HEPARIN SODIUM [Suspect]
     Active Substance: HEPARIN SODIUM
     Dosage: UNK
     Route: 042
  2. HEPARIN SODIUM [Suspect]
     Active Substance: HEPARIN SODIUM
     Dosage: HIGHER DOSE HEPARIN(THROMBOLYTIC THERAPY )
  3. ALTEPLASE [Suspect]
     Active Substance: ALTEPLASE
     Indication: May-Thurner syndrome
     Dosage: UNK (THROMBOLYTIC THERAPY)
  4. ALTEPLASE [Suspect]
     Active Substance: ALTEPLASE
     Indication: Pulmonary embolism
  5. ALTEPLASE [Suspect]
     Active Substance: ALTEPLASE
     Indication: Deep vein thrombosis

REACTIONS (1)
  - Hypoxia [Recovering/Resolving]
